FAERS Safety Report 5393469-X (Version None)
Quarter: 2007Q3

REPORT INFORMATION
  Report Type: 
  Country: None (occurrence: None)
  Receive Date: 20070723
  Receipt Date: 20060613
  Transmission Date: 20080115
  Serious: No
  Sender: FDA-Public Use
  Company Number: A0608806A

PATIENT
  Age: 54 Year
  Sex: Female

DRUGS (2)
  1. AVANDIA [Suspect]
     Dosage: 4MG PER DAY
     Route: 048
     Dates: start: 20060608
  2. METFORMIN HCL [Concomitant]

REACTIONS (4)
  - COUGH [None]
  - NASAL CONGESTION [None]
  - RHINORRHOEA [None]
  - THROAT IRRITATION [None]
